FAERS Safety Report 14032466 (Version 1)
Quarter: 2017Q4

REPORT INFORMATION
  Report Type: Spontaneous
  Country: US (occurrence: US)
  Receive Date: 20171003
  Receipt Date: 20171003
  Transmission Date: 20180321
  Serious: No
  Sender: FDA-Public Use
  Company Number: US-SHIRE-US201717912

PATIENT

DRUGS (1)
  1. CINRYZE [Suspect]
     Active Substance: HUMAN C1-ESTERASE INHIBITOR
     Indication: PRODUCT USED FOR UNKNOWN INDICATION
     Dosage: 1000 IU, ( 2 BOXES,, EVERY THREE DAYS)
     Route: 065

REACTIONS (4)
  - Drug dose omission [Unknown]
  - Erythema [Unknown]
  - Swelling face [Unknown]
  - Heart rate increased [Unknown]
